FAERS Safety Report 24155062 (Version 9)
Quarter: 2025Q2

REPORT INFORMATION
  Report Type: Report from Study
  Country: US (occurrence: US)
  Receive Date: 20240731
  Receipt Date: 20250418
  Transmission Date: 20250716
  Serious: Yes (Hospitalization)
  Sender: AMGEN
  Company Number: US-AMGEN-USASP2024150949

PATIENT
  Sex: Female

DRUGS (5)
  1. RAVICTI [Suspect]
     Active Substance: GLYCEROL PHENYLBUTYRATE
     Indication: Argininosuccinate synthetase deficiency
     Dosage: 0.7 MILLILITER, TID (1.1 GRAMS/ML)
     Route: 048
  2. RAVICTI [Suspect]
     Active Substance: GLYCEROL PHENYLBUTYRATE
     Dosage: 0.8 MILLILITER, TID (1. 1 GRAMS/M L 25M L BT)
     Route: 048
  3. RAVICTI [Suspect]
     Active Substance: GLYCEROL PHENYLBUTYRATE
     Dosage: 0.9 MILLILITER, TID (PACKAGING SIZE: 3/25ML BT) TOTAL DAILY DOSE OF 2.7 ML.
     Route: 048
  4. RAVICTI [Suspect]
     Active Substance: GLYCEROL PHENYLBUTYRATE
     Dosage: 1.4 MILLILITER, TID (1.1 GRAMS/ML 25ML BT) (DISCARD REMAINDER OF BOTTLE 28 DAYS AFTER OPENING)
  5. RAVICTI [Suspect]
     Active Substance: GLYCEROL PHENYLBUTYRATE
     Dosage: 1.1 MILLILITER, TID (TAKE 1.1ML THREE TIMES A DAY)

REACTIONS (5)
  - Hyperammonaemia [Unknown]
  - Unevaluable event [Unknown]
  - Decreased appetite [Unknown]
  - Vomiting [Not Recovered/Not Resolved]
  - Therapy cessation [Unknown]
